APPROVED DRUG PRODUCT: PENTAMIDINE ISETHIONATE
Active Ingredient: PENTAMIDINE ISETHIONATE
Strength: 300MG/VIAL
Dosage Form/Route: FOR SOLUTION;INHALATION
Application: A206983 | Product #001 | TE Code: AN
Applicant: X-GEN PHARMACEUTICALS INC
Approved: Jan 20, 2023 | RLD: No | RS: No | Type: RX